FAERS Safety Report 19275273 (Version 1)
Quarter: 2021Q2

REPORT INFORMATION
  Report Type: Spontaneous
  Country: FR (occurrence: FR)
  Receive Date: 20210519
  Receipt Date: 20210519
  Transmission Date: 20210717
  Serious: Yes (Other)
  Sender: FDA-Public Use
  Company Number: FR-PFIZER INC-2021519421

PATIENT
  Age: 17 Year
  Sex: Female

DRUGS (3)
  1. CANNABIS [Suspect]
     Active Substance: CANNABIS SATIVA SUBSP. INDICA TOP
     Dosage: 2 TO 5 JOINTS DAILY
     Route: 055
  2. ALCOHOL. [Suspect]
     Active Substance: ALCOHOL
     Dosage: OCCASIONAL
     Route: 048
  3. LYRICA [Suspect]
     Active Substance: PREGABALIN
     Dosage: 2 CAPSULES OF 300 MG/INTAKE, 2 INTAKES IN TOTAL
     Route: 048

REACTIONS (4)
  - Substance abuse [Unknown]
  - Off label use [Unknown]
  - Poisoning [Recovering/Resolving]
  - Substance use disorder [Not Recovered/Not Resolved]
